FAERS Safety Report 8573378 (Version 2)
Quarter: 2013Q3

REPORT INFORMATION
  Report Type: Spontaneous
  Country: US (occurrence: US)
  Receive Date: 20120522
  Receipt Date: 20130927
  Transmission Date: 20140515
  Serious: No
  Sender: FDA-Public Use
  Company Number: US-BRISTOL-MYERS SQUIBB COMPANY-16487761

PATIENT
  Age: 67 Year
  Sex: Female
  Weight: 79 kg

DRUGS (2)
  1. ONGLYZA TABS [Suspect]
     Dosage: HAD TAKEN 2 DOSES.
     Dates: start: 20120328
  2. SYNTHROID [Concomitant]

REACTIONS (2)
  - Blood glucose increased [Unknown]
  - Blood pressure increased [Unknown]
